FAERS Safety Report 15135312 (Version 6)
Quarter: 2018Q3

REPORT INFORMATION
  Report Type: Spontaneous
  Country: US (occurrence: US)
  Receive Date: 20180712
  Receipt Date: 20180815
  Transmission Date: 20181010
  Serious: Yes (Disabling, Other)
  Sender: FDA-Public Use
  Company Number: US-PFIZER INC-2018279650

PATIENT
  Age: 58 Year
  Sex: Female
  Weight: 47.17 kg

DRUGS (3)
  1. CENTRUM FOR SENIORS [Concomitant]
     Indication: VITAMIN SUPPLEMENTATION
     Dosage: 1 DF, 1X/DAY
     Route: 048
  2. ESTRING [Suspect]
     Active Substance: ESTRADIOL
     Indication: MENOPAUSAL SYMPTOMS
     Dosage: 2 MG, EVERY 3 MONTHS [VAGINAL RING INSERT VAGINALLY, WEAR FOR 3 MONTHS], 1/90 DAY
     Route: 067
     Dates: start: 201806, end: 20180709
  3. ESTRING [Suspect]
     Active Substance: ESTRADIOL
     Indication: MENOPAUSE
     Dosage: UNK(WORE ESTRING FOR 1 WEEK)

REACTIONS (8)
  - Metamorphopsia [Recovering/Resolving]
  - Vision blurred [Recovering/Resolving]
  - Eye disorder [Recovering/Resolving]
  - Muscle strain [Recovering/Resolving]
  - Headache [Recovered/Resolved]
  - Visual impairment [Recovering/Resolving]
  - Blindness [Recovering/Resolving]
  - Retinal oedema [Recovering/Resolving]

NARRATIVE: CASE EVENT DATE: 20180709
